FAERS Safety Report 7203983-X (Version None)
Quarter: 2010Q4

REPORT INFORMATION
  Report Type: 
  Country: None (occurrence: None)
  Receive Date: 20101220
  Receipt Date: 20101202
  Transmission Date: 20110411
  Serious: Yes (Death, Hospitalization)
  Sender: FDA-Public Use
  Company Number: 10-538

PATIENT
  Age: 67 Year
  Sex: Female

DRUGS (2)
  1. ASPIRIN [Suspect]
     Dosage: ORAL
     Route: 048
     Dates: start: 19830101
  2. IBUPROFEN [Suspect]
     Dosage: ORAL
     Route: 048
     Dates: start: 19830101

REACTIONS (10)
  - CARDIAC ARREST [None]
  - COMA [None]
  - CONFUSIONAL STATE [None]
  - DEAFNESS [None]
  - DRUG TOXICITY [None]
  - FEELING COLD [None]
  - HYPERVENTILATION [None]
  - HYPOTENSION [None]
  - MULTIPLE DRUG OVERDOSE [None]
  - VOMITING [None]
